FAERS Safety Report 6800586-3 (Version None)
Quarter: 2010Q2

REPORT INFORMATION
  Report Type: 
  Country: None (occurrence: None)
  Receive Date: 20100629
  Receipt Date: 20100621
  Transmission Date: 20101027
  Serious: Yes (Other)
  Sender: FDA-Public Use
  Company Number: US-ASTRAZENECA-2009UW11018

PATIENT
  Age: 18032 Day
  Sex: Male

DRUGS (4)
  1. SEROQUEL [Suspect]
     Dosage: ONE HALF TABLET AT BEDTIME
     Route: 048
     Dates: start: 20020919
  2. NIFEDIPINE [Concomitant]
     Indication: BLOOD PRESSURE
     Route: 048
     Dates: start: 20020919
  3. GEMFIBROZIL [Concomitant]
     Indication: BLOOD TRIGLYCERIDES
     Route: 048
     Dates: start: 20020905
  4. ARIPIPRAZOLE [Concomitant]
     Dosage: ONE HALF TABLET AT BEDTIME
     Route: 048
     Dates: start: 20040101

REACTIONS (2)
  - DIABETIC RETINOPATHY [None]
  - TYPE 2 DIABETES MELLITUS [None]
